FAERS Safety Report 5194305-7 (Version None)
Quarter: 2006Q4

REPORT INFORMATION
  Report Type: 
  Country: None (occurrence: None)
  Receive Date: 20061228
  Receipt Date: 20061101
  Transmission Date: 20070319
  Serious: Yes (Other)
  Sender: FDA-Public Use
  Company Number: US-PFIZER INC-2006134712

PATIENT
  Sex: Female
  Weight: 61.7 kg

DRUGS (2)
  1. LYRICA [Suspect]
     Indication: NEUROPATHY
  2. LYRICA [Suspect]
     Indication: PAIN IN EXTREMITY

REACTIONS (2)
  - DRUG ABUSER [None]
  - INTENTIONAL DRUG MISUSE [None]
